FAERS Safety Report 8866197 (Version 1)
Quarter: 2012Q4

REPORT INFORMATION
  Report Type: 
  Country: JP (occurrence: JP)
  Receive Date: 20121025
  Receipt Date: 20121025
  Transmission Date: 20130627
  Serious: Yes (Other)
  Sender: FDA-Public Use
  Company Number: PHHY2012JP090740

PATIENT
  Age: 74 Year
  Sex: Male

DRUGS (3)
  1. IMATINIB [Suspect]
     Indication: CHRONIC MYELOID LEUKAEMIA
     Dosage: 300 mg, UNK
     Route: 048
     Dates: end: 20110310
  2. IMATINIB [Suspect]
     Dosage: UNK UKN, UNK
     Route: 048
     Dates: start: 20110420, end: 20110520
  3. CICLOSPORIN [Suspect]
     Indication: APLASIA PURE RED CELL
     Dosage: UNK UKN, UNK
     Dates: start: 20110311, end: 20110419

REACTIONS (3)
  - Pancytopenia [Unknown]
  - Anaemia [Unknown]
  - Oedema [Unknown]
